FAERS Safety Report 25190044 (Version 1)
Quarter: 2025Q2

REPORT INFORMATION
  Report Type: Spontaneous
  Country: US (occurrence: None)
  Receive Date: 20250411
  Receipt Date: 20250411
  Transmission Date: 20250716
  Serious: No
  Sender: FDA-CTU
  Company Number: None

PATIENT
  Age: 57 Year
  Sex: Female
  Weight: 102.6 kg

DRUGS (23)
  1. XEMBIFY [Suspect]
     Active Substance: HUMAN IMMUNOGLOBULIN G
     Indication: Hypogammaglobulinaemia
     Route: 030
     Dates: start: 20250305
  2. Multivitamin 2x day [Concomitant]
  3. Eye promise restore 1x/day [Concomitant]
  4. B12 5000mcg every other week [Concomitant]
  5. VITAMIN D3 [Concomitant]
     Active Substance: CHOLECALCIFEROL
  6. Ca Biotin 5000 mg [Concomitant]
  7. Chlorthalidone 25mg 1x/day [Concomitant]
  8. Patonase as needed Qnasl [Concomitant]
  9. QNASK 1 spray each nostril 2xday Singular [Concomitant]
  10. Cefdinir in nasal saline [Concomitant]
  11. Ipratropium 1-2 sprays each nostril 3x day [Concomitant]
  12. Propranolol 20mg/day [Concomitant]
  13. Carvedilol 6.25mg 1 pill 2x/day [Concomitant]
  14. ASPIRIN [Concomitant]
     Active Substance: ASPIRIN
  15. Vescepa 1g 4 pills/day [Concomitant]
  16. CoQ10 100mg/day [Concomitant]
  17. Nexletol 180mg 1x day [Concomitant]
  18. Budesonide (used in xclear) [Concomitant]
  19. Nexium 40 mg 1x day [Concomitant]
  20. Rybelsus 3mg/day [Concomitant]
  21. Synjardy XR 12.5-1000mg 2x day [Concomitant]
  22. Wakix 17.8x 2/day [Concomitant]
  23. SCIG 14G/WEEK (Infusion) [Concomitant]

REACTIONS (1)
  - Infusion site erythema [None]

NARRATIVE: CASE EVENT DATE: 20250319
